FAERS Safety Report 4344124-6 (Version None)
Quarter: 2004Q2

REPORT INFORMATION
  Report Type: 
  Country: None (occurrence: None)
  Receive Date: 20040419
  Receipt Date: 20040414
  Transmission Date: 20050107
  Serious: Yes (Death, Hospitalization)
  Sender: FDA-Public Use
  Company Number: 2004-04-0037

PATIENT
  Age: 46 Year
  Sex: Male

DRUGS (2)
  1. PEG-INTRON [Suspect]
     Indication: HEPATITIS C
     Dosage: 50 MCG Q2W SUBCUTANEOUS
     Route: 058
     Dates: start: 20021105, end: 20040216
  2. SILYMARIN [Concomitant]

REACTIONS (4)
  - ABDOMINAL PAIN [None]
  - ILEUS PARALYTIC [None]
  - PERITONITIS [None]
  - SHOCK [None]
